FAERS Safety Report 8674462 (Version 2)
Quarter: 2012Q4

REPORT INFORMATION
  Report Type: 
  Country: ES (occurrence: ES)
  Receive Date: 20120720
  Receipt Date: 20120919
  Transmission Date: 20130627
  Serious: Yes (Hospitalization, Other)
  Sender: FDA-Public Use
  Company Number: ES-ROCHE-1084472

PATIENT
  Age: 40 None
  Sex: Female
  Weight: 52 kg

DRUGS (7)
  1. MABTHERA [Suspect]
     Indication: B-CELL LYMPHOMA
     Dosage: Last dose was on Apr/2012, total cycle recived: 15
     Route: 042
     Dates: start: 200911, end: 20120418
  2. CICLOFOSFAMIDA [Concomitant]
     Route: 042
     Dates: start: 200911, end: 201002
  3. DOXORUBICIN HYDROCHLORIDE [Concomitant]
     Dosage: total cycles recived: 9
     Route: 042
     Dates: start: 200911, end: 201102
  4. VINCRISTINA [Concomitant]
     Dosage: total cycles recived: 6
     Route: 042
  5. PREDNISONE [Concomitant]
     Dosage: total cycle recived:9
     Route: 048
     Dates: start: 200911, end: 201102
  6. VP-16 [Concomitant]
     Dosage: total cycle recived: 3
     Route: 042
     Dates: start: 201012, end: 201102
  7. CISPLATINO [Concomitant]
     Dosage: total cycle recived:3
     Route: 042
     Dates: start: 201012

REACTIONS (2)
  - Neurological decompensation [Not Recovered/Not Resolved]
  - JC virus test positive [Unknown]
